FAERS Safety Report 19953336 (Version 1)
Quarter: 2021Q4

REPORT INFORMATION
  Report Type: Spontaneous
  Country: US (occurrence: US)
  Receive Date: 20211012
  Receipt Date: 20211012
  Transmission Date: 20220303
  Serious: Yes (Life-Threatening, Hospitalization)
  Sender: FDA-Public Use
  Company Number: None

PATIENT
  Age: 69 Year
  Sex: Male
  Weight: 51 kg

DRUGS (1)
  1. DABIGATRAN ETEXILATE [Suspect]
     Active Substance: DABIGATRAN ETEXILATE
     Indication: Gastrointestinal haemorrhage
     Route: 048
     Dates: start: 20170213, end: 20210712

REACTIONS (3)
  - Haemorrhage [None]
  - Hypotension [None]
  - Shock haemorrhagic [None]

NARRATIVE: CASE EVENT DATE: 20210712
